FAERS Safety Report 16741342 (Version 1)
Quarter: 2019Q4

REPORT INFORMATION
  Report Type: Spontaneous
  Country: US (occurrence: US)
  Receive Date: 20190826
  Receipt Date: 20190826
  Transmission Date: 20200122
  Serious: No
  Sender: FDA-Public Use
  Company Number: None

PATIENT
  Age: 64 Year
  Sex: Female
  Weight: 63 kg

DRUGS (11)
  1. ROSUVASTATIN. [Concomitant]
     Active Substance: ROSUVASTATIN
  2. TOPAMAX [Concomitant]
     Active Substance: TOPIRAMATE
  3. RELPAX [Suspect]
     Active Substance: ELETRIPTAN HYDROBROMIDE
     Indication: MIGRAINE
     Dosage: ?          QUANTITY:1 TABLET(S);?
     Route: 048
     Dates: start: 20100802, end: 20190826
  4. KLOR-CON [Concomitant]
     Active Substance: POTASSIUM CHLORIDE
  5. FUROSEMIDE. [Concomitant]
     Active Substance: FUROSEMIDE
  6. DIVALPROEX [Concomitant]
     Active Substance: DIVALPROEX SODIUM
  7. DULOXETINE. [Concomitant]
     Active Substance: DULOXETINE
  8. OMEPRAZOLE. [Concomitant]
     Active Substance: OMEPRAZOLE
  9. AIMOV IG [Concomitant]
  10. NITROGLYCERIN. [Concomitant]
     Active Substance: NITROGLYCERIN
  11. RANEXA [Concomitant]
     Active Substance: RANOLAZINE

REACTIONS (6)
  - Disorientation [None]
  - Bedridden [None]
  - Asthenia [None]
  - Nausea [None]
  - Feeling abnormal [None]
  - Pyrexia [None]

NARRATIVE: CASE EVENT DATE: 20190820
